FAERS Safety Report 9418078 (Version 1)
Quarter: 2013Q3

REPORT INFORMATION
  Report Type: Spontaneous
  Country: US (occurrence: US)
  Receive Date: 20130724
  Receipt Date: 20130724
  Transmission Date: 20140515
  Serious: No
  Sender: FDA-Public Use
  Company Number: US-009507513-1307USA013693

PATIENT
  Sex: Male

DRUGS (2)
  1. COPPERTONE SPORT LOTION SPF 50 [Suspect]
     Indication: PRODUCT USED FOR UNKNOWN INDICATION
     Dosage: UNK, UNKNOWN
     Route: 061
     Dates: start: 20130707
  2. COPPERTONE SPORT LOTION SPF 50 [Suspect]
     Dosage: UNK

REACTIONS (1)
  - Sunburn [Unknown]
